FAERS Safety Report 9095727 (Version 1)
Quarter: 2013Q1

REPORT INFORMATION
  Report Type: Spontaneous
  Country: JP (occurrence: None)
  Receive Date: 20130124
  Receipt Date: 20130124
  Transmission Date: 20140127
  Serious: Yes (Death)
  Sender: FDA-Public Use
  Company Number: CIP-2013-0007

PATIENT
  Age: 66 Year
  Sex: Female

DRUGS (4)
  1. IRINOTECAN [Suspect]
     Dosage: (40 MG/M2,DAYS 1,8 , AND 15)
  2. IRINOTECAN [Suspect]
     Indication: SMALL CELL LUNG CANCER
     Dosage: (40 MG/M2,DAYS 1,8 , AND 15)
  3. CISPLATIN [Suspect]
  4. UNSPECIFIED DRUG [Suspect]
     Dosage: 2 GY PER FRACTION ONCE DAILY WITH A SPLIT SCHEDULE (5 DAYS/WEEK FROM DAY 2 OF EACH CHEMO CYC),LINEAR ACCELERATOR

REACTIONS (3)
  - Loss of consciousness [None]
  - Pneumonitis [None]
  - Acute respiratory distress syndrome [None]
